FAERS Safety Report 7432951-8 (Version None)
Quarter: 2011Q2

REPORT INFORMATION
  Report Type: 
  Country: None (occurrence: None)
  Receive Date: 20110422
  Receipt Date: 20110420
  Transmission Date: 20111010
  Serious: No
  Sender: FDA-Public Use
  Company Number: US-PFIZER INC-2011069588

PATIENT
  Sex: Female

DRUGS (4)
  1. SEROQUEL [Concomitant]
     Dosage: 200 UNK, 1X/DAY
  2. LEVOXYL [Concomitant]
     Indication: HYPOTHYROIDISM
     Dosage: 0.088 UNK, 1X/DAY
  3. PRISTIQ [Suspect]
     Indication: DEPRESSION
     Dosage: 50 MG, 1X/DAY
     Route: 048
     Dates: start: 20110204
  4. TOPAMAX [Concomitant]
     Dosage: 100 MG, 1X/DAY

REACTIONS (1)
  - DRUG SCREEN POSITIVE [None]
